FAERS Safety Report 5047212-4 (Version None)
Quarter: 2006Q3

REPORT INFORMATION
  Report Type: 
  Country: None (occurrence: None)
  Receive Date: 20060703
  Receipt Date: 20060622
  Transmission Date: 20061208
  Serious: Yes (Other)
  Sender: FDA-Public Use
  Company Number: 225778

PATIENT
  Age: 81 Year
  Sex: Female

DRUGS (2)
  1. AVASTIN [Suspect]
     Indication: MACULAR DEGENERATION
     Dosage: 1 MG, SINGLE, INTRAVITREAL
  2. GENTAMICIN [Concomitant]

REACTIONS (5)
  - CORNEAL OEDEMA [None]
  - INFECTION [None]
  - NONSPECIFIC REACTION [None]
  - PAIN [None]
  - PHARMACEUTICAL PRODUCT COMPLAINT [None]
